FAERS Safety Report 4459850-8 (Version None)
Quarter: 2004Q3

REPORT INFORMATION
  Report Type: 
  Country: None (occurrence: None)
  Receive Date: 20040928
  Receipt Date: 20040512
  Transmission Date: 20050211
  Serious: No
  Sender: FDA-Public Use
  Company Number: US-BRISTOL-MYERS SQUIBB COMPANY-12586046

PATIENT
  Age: 2 Year
  Sex: Female

DRUGS (2)
  1. TRIMOX [Suspect]
     Route: 048
     Dates: start: 20040429, end: 20040508
  2. VITAMIN + IRON [Concomitant]
     Dosage: CHEWABLE-^TAKING FOR A WHILE^

REACTIONS (1)
  - TOOTH DISCOLOURATION [None]
